FAERS Safety Report 7005930-2 (Version None)
Quarter: 2010Q3

REPORT INFORMATION
  Report Type: 
  Country: None (occurrence: None)
  Receive Date: 20100921
  Receipt Date: 20100908
  Transmission Date: 20110219
  Serious: Yes (Other)
  Sender: FDA-Public Use
  Company Number: US-ELI_LILLY_AND_COMPANY-US201008007666

PATIENT
  Age: 51 Year
  Sex: Male

DRUGS (9)
  1. ZYPREXA RELPREVV [Suspect]
     Indication: SCHIZOPHRENIA
     Dosage: 405 MG, OTHER
     Route: 030
     Dates: start: 20100401
  2. KLONOPIN [Concomitant]
  3. ATENOLOL [Concomitant]
  4. ENABLEX                            /01760402/ [Concomitant]
  5. FAMOTIDINE [Concomitant]
  6. ALBUTEROL [Concomitant]
  7. ATROVENT [Concomitant]
  8. SINGULAIR [Concomitant]
  9. LORATADINE [Concomitant]

REACTIONS (1)
  - WEIGHT DECREASED [None]
